FAERS Safety Report 18378513 (Version 1)
Quarter: 2020Q4

REPORT INFORMATION
  Report Type: Spontaneous
  Country: US (occurrence: US)
  Receive Date: 20201013
  Receipt Date: 20201013
  Transmission Date: 20210114
  Serious: No
  Sender: FDA-Public Use
  Company Number: US-AMNEAL PHARMACEUTICALS-2020-AMRX-02322

PATIENT
  Age: 29 Year
  Sex: Female

DRUGS (1)
  1. ISOTRETINOIN. [Suspect]
     Active Substance: ISOTRETINOIN
     Indication: PRODUCT USED FOR UNKNOWN INDICATION
     Dosage: UNK
     Route: 065
     Dates: start: 20200722, end: 20200730

REACTIONS (6)
  - Lip dry [Unknown]
  - Dry throat [Unknown]
  - Ear pain [Unknown]
  - Headache [Unknown]
  - Rash [Unknown]
  - Epistaxis [Unknown]

NARRATIVE: CASE EVENT DATE: 202007
